FAERS Safety Report 9686437 (Version 1)
Quarter: 2013Q4

REPORT INFORMATION
  Report Type: Spontaneous
  Country: JP (occurrence: None)
  Receive Date: 20131108
  Receipt Date: 20131108
  Transmission Date: 20140711
  Serious: Yes (Hospitalization)
  Sender: FDA-Public Use
  Company Number: ADR-2013-02036

PATIENT
  Age: 76 Year
  Sex: Male
  Weight: 70 kg

DRUGS (1)
  1. GABALON [Suspect]
     Dates: start: 20080801

REACTIONS (3)
  - Skin oedema [None]
  - Infection [None]
  - Implant site extravasation [None]
